FAERS Safety Report 8852447 (Version 1)
Quarter: 2012Q4

REPORT INFORMATION
  Report Type: Spontaneous
  Country: US (occurrence: None)
  Receive Date: 20121017
  Receipt Date: 20121017
  Transmission Date: 20130627
  Serious: Yes (Other)
  Sender: FDA-Public Use
  Company Number: 2012MA011902

PATIENT
  Age: 82 Year
  Sex: Female

DRUGS (3)
  1. BACITRACIN ZINC [Suspect]
     Indication: LACERATION OF ARM
     Route: 061
     Dates: start: 20120823, end: 20120925
  2. SYNTHROID [Concomitant]
  3. ANTIHISTAMINE [Concomitant]

REACTIONS (3)
  - Erythema [None]
  - Application site urticaria [None]
  - Hypersensitivity [None]
